FAERS Safety Report 8031724-5 (Version None)
Quarter: 2012Q1

REPORT INFORMATION
  Report Type: 
  Country: None (occurrence: None)
  Receive Date: 20120109
  Receipt Date: 20111229
  Transmission Date: 20120608
  Serious: Yes (Other)
  Sender: FDA-Public Use
  Company Number: US-ASTRAZENECA-2012SE00199

PATIENT
  Age: 65 Year
  Sex: Female

DRUGS (22)
  1. LANTUS [Concomitant]
     Dosage: 100 UNIT/ML 56 U QHS
  2. FOLIC ACID [Concomitant]
  3. RECLAST [Concomitant]
     Dosage: 5MG/100ML ONCE A YEAR
  4. SYNTHROID [Concomitant]
     Dosage: 1 1/2 TAB ON SUNDAY, 1 TAB QD ON THE OTHER DAY 6 DAYS A WEEK
  5. VESICARE [Concomitant]
  6. NITROGLYCERIN [Concomitant]
     Route: 060
  7. METOPROLOL TARTRATE [Concomitant]
  8. PLAVIX [Concomitant]
     Route: 048
  9. SIMVASTATIN [Concomitant]
     Route: 048
  10. VITAMIN D [Concomitant]
     Dosage: 5000 UNIT 1 TAB Q WEEK
  11. LISINOPRIL [Suspect]
     Route: 048
  12. NOVOLOG [Concomitant]
     Dosage: 100 U/ML 4U AC AND 1U/50}150, ONLY 2 PRIOR TO EXERC
  13. ASPIRIN [Concomitant]
     Route: 048
  14. XALATAN [Concomitant]
     Dosage: 0.005% 1QTT OU QD
  15. DORZOLAMIDE HCL [Concomitant]
     Dosage: BID IN LEFT EYE
  16. NEXIUM [Suspect]
     Route: 048
  17. VICTOZA [Concomitant]
     Dosage: 18MG/3ML SOLN
  18. PROVIGIL [Concomitant]
  19. CYMBALTA [Concomitant]
  20. XYREM [Concomitant]
     Dosage: 500MG/ML,4.5 MG TWICE AT NIGHT
  21. FUROSEMIDE [Concomitant]
  22. ROCALTROL [Concomitant]

REACTIONS (19)
  - BLADDER DYSFUNCTION [None]
  - MYOCARDIAL INFARCTION [None]
  - OSTEOPOROSIS [None]
  - ADRENAL MASS [None]
  - HYPOPARATHYROIDISM [None]
  - CATAPLEXY [None]
  - SLEEP APNOEA SYNDROME [None]
  - HYPERTENSION [None]
  - DEPRESSION [None]
  - CHOLELITHIASIS [None]
  - DIABETIC NEPHROPATHY [None]
  - HYPOTHYROIDISM [None]
  - HYPERCHOLESTEROLAEMIA [None]
  - SINUSITIS [None]
  - RAYNAUD'S PHENOMENON [None]
  - DIABETIC NEUROPATHY [None]
  - DIABETES MELLITUS INADEQUATE CONTROL [None]
  - CORONARY ARTERY DISEASE [None]
  - VITAMIN D DEFICIENCY [None]
